FAERS Safety Report 20419294 (Version 1)
Quarter: 2022Q1

REPORT INFORMATION
  Report Type: Spontaneous
  Country: GR (occurrence: GR)
  Receive Date: 20220203
  Receipt Date: 20220203
  Transmission Date: 20220424
  Serious: Yes (Other)
  Sender: FDA-Public Use
  Company Number: GR-IFET-0122138

PATIENT
  Sex: Female

DRUGS (4)
  1. HYDROCORTISONE [Suspect]
     Active Substance: HYDROCORTISONE
     Indication: Polyglandular autoimmune syndrome type I
     Route: 065
  2. CALCIUM [Suspect]
     Active Substance: CALCIUM
     Indication: Polyglandular autoimmune syndrome type I
     Route: 065
  3. FLUDROCORTISONE [Suspect]
     Active Substance: FLUDROCORTISONE
     Indication: Multiple endocrine neoplasia
     Route: 065
  4. ALFACALCIDOL [Suspect]
     Active Substance: ALFACALCIDOL
     Indication: Polyglandular autoimmune syndrome type I
     Route: 065

REACTIONS (1)
  - Renal failure [Recovered/Resolved]
